FAERS Safety Report 6821280-9 (Version None)
Quarter: 2010Q3

REPORT INFORMATION
  Report Type: 
  Country: None (occurrence: None)
  Receive Date: 20100707
  Receipt Date: 20080806
  Transmission Date: 20110219
  Serious: No
  Sender: FDA-Public Use
  Company Number: US-PFIZER INC-2008066465

PATIENT
  Sex: Female
  Weight: 65.909 kg

DRUGS (4)
  1. ZOLOFT [Suspect]
     Indication: DEPRESSION
     Dates: start: 20080722
  2. ZOLOFT [Suspect]
     Indication: ANXIETY
  3. ZOLOFT [Suspect]
     Indication: PANIC ATTACK
  4. LORAZEPAM [Concomitant]

REACTIONS (4)
  - DRY MOUTH [None]
  - INSOMNIA [None]
  - OROPHARYNGEAL PAIN [None]
  - SOMNOLENCE [None]
